FAERS Safety Report 6165810-1 (Version None)
Quarter: 2009Q2

REPORT INFORMATION
  Report Type: 
  Country: None (occurrence: None)
  Receive Date: 20090422
  Receipt Date: 20090413
  Transmission Date: 20091009
  Serious: Yes (Other)
  Sender: FDA-Public Use
  Company Number: 2009JP000978

PATIENT
  Sex: Male

DRUGS (2)
  1. FUNGUARD(MICAFUNGIN) INJECTION [Suspect]
     Dosage: IV DRIP
     Route: 041
  2. TARGOCID [Suspect]
     Dosage: IV DRIP
     Route: 041

REACTIONS (2)
  - DISSEMINATED INTRAVASCULAR COAGULATION [None]
  - PLATELET COUNT DECREASED [None]
